FAERS Safety Report 9895126 (Version 1)
Quarter: 2014Q1

REPORT INFORMATION
  Report Type: Spontaneous
  Country: US (occurrence: US)
  Receive Date: 20140213
  Receipt Date: 20140213
  Transmission Date: 20141002
  Serious: No
  Sender: FDA-Public Use
  Company Number: US-BRISTOL-MYERS SQUIBB COMPANY-18905513

PATIENT
  Age: 62 Year
  Sex: Male
  Weight: 83.9 kg

DRUGS (6)
  1. ABATACEPT SUBQ INJECTION 125MG/ML [Suspect]
     Indication: RHEUMATOID ARTHRITIS
     Route: 058
     Dates: start: 201205
  2. DOXYCYCLINE [Concomitant]
  3. OMEPRAZOLE [Concomitant]
  4. MULTIVITAMIN [Concomitant]
  5. PRAVASTATINE [Concomitant]
  6. PREDNISONE [Concomitant]

REACTIONS (1)
  - Dizziness [Unknown]
